FAERS Safety Report 5244985-2 (Version None)
Quarter: 2007Q1

REPORT INFORMATION
  Report Type: 
  Country: None (occurrence: None)
  Receive Date: 20070221
  Receipt Date: 20070221
  Transmission Date: 20070707
  Serious: No
  Sender: FDA-Public Use
  Company Number: None

PATIENT
  Sex: Male
  Weight: 136 kg

DRUGS (5)
  1. VYTORIN [Suspect]
     Indication: HYPERLIPIDAEMIA
     Dosage: 10-80 QHS PO
     Route: 048
  2. GLYBURIDE [Concomitant]
  3. PRINZIDE [Concomitant]
  4. SYNTHROID [Concomitant]
  5. DILTIAZEM HCL [Concomitant]

REACTIONS (3)
  - ABDOMINAL DISTENSION [None]
  - ABDOMINAL PAIN [None]
  - VISION BLURRED [None]
